FAERS Safety Report 9157903 (Version 3)
Quarter: 2013Q3

REPORT INFORMATION
  Report Type: Report from Study
  Country: MX (occurrence: MX)
  Receive Date: 20130312
  Receipt Date: 20130822
  Transmission Date: 20140515
  Serious: Yes (Hospitalization)
  Sender: FDA-Public Use
  Company Number: MX-ELI_LILLY_AND_COMPANY-MX201302004701

PATIENT
  Age: 36 Year
  Sex: Female

DRUGS (12)
  1. HUMAN INSULIN (RDNA ORIGIN) NPH [Suspect]
     Indication: TYPE 2 DIABETES MELLITUS
     Dosage: 16 IU, QD
     Dates: start: 20130211
  2. HUMAN INSULIN (RDNA ORIGIN) NPH [Suspect]
     Dosage: 15 IU, QD
  3. HUMAN INSULIN (RDNA ORIGIN) NPH [Suspect]
     Dosage: 16 IU, EACH EVENING AT 10PM
     Dates: end: 20130701
  4. HUMALOG LISPRO [Suspect]
     Indication: TYPE 2 DIABETES MELLITUS
     Dosage: 1 IU, EACH MORNING
     Dates: start: 20130222
  5. HUMALOG LISPRO [Suspect]
     Dosage: 2 IU, EACH EVENING
     Dates: start: 20130222
  6. HUMALOG LISPRO [Suspect]
     Dosage: 4 IU, QD
  7. HUMALOG LISPRO [Suspect]
     Dosage: 1 IU, EACH MORNING BEFORE BREAKFAST
     Dates: end: 20130701
  8. HUMALOG LISPRO [Suspect]
     Dosage: 2 IU, EACH EVENING BEFORE DINNER
     Dates: end: 20130701
  9. DABEX                                   /MEX/ [Concomitant]
     Dosage: 500 MG, QD
  10. PRENATAL VITAMINS                  /01549301/ [Concomitant]
     Indication: PREGNANCY
     Dosage: 1 DF, QD
  11. CALCIUM [Concomitant]
     Indication: PREGNANCY
     Dosage: UNK
  12. PROGESTERONE [Concomitant]
     Indication: VAGINAL HAEMORRHAGE
     Dosage: 1 DF, BID

REACTIONS (4)
  - Cervical incompetence [Recovered/Resolved]
  - Exposure during pregnancy [Recovered/Resolved]
  - Exposure during breast feeding [Recovered/Resolved]
  - Lactation disorder [Unknown]
